FAERS Safety Report 16872034 (Version 2)
Quarter: 2020Q1

REPORT INFORMATION
  Report Type: Spontaneous
  Country: US (occurrence: US)
  Receive Date: 20191001
  Receipt Date: 20200316
  Transmission Date: 20200409
  Serious: No
  Sender: FDA-Public Use
  Company Number: US-TEVA-2019-US-1115063

PATIENT
  Sex: Female

DRUGS (2)
  1. CLONAZEPAM ACTAVIS [Suspect]
     Active Substance: CLONAZEPAM
     Indication: PANIC ATTACK
     Route: 065
     Dates: start: 201907
  2. CLONAZEPAM ACTAVIS [Suspect]
     Active Substance: CLONAZEPAM
     Indication: ANXIETY
     Dosage: 1.5 MILLIGRAM DAILY;
     Route: 065
     Dates: start: 201205, end: 201908

REACTIONS (6)
  - Nausea [Unknown]
  - Product substitution issue [Unknown]
  - Panic attack [Unknown]
  - Rash [Unknown]
  - Anxiety [Unknown]
  - Drug ineffective [Unknown]

NARRATIVE: CASE EVENT DATE: 2019
